FAERS Safety Report 22107486 (Version 1)
Quarter: 2023Q1

REPORT INFORMATION
  Report Type: Spontaneous
  Country: DE (occurrence: DE)
  Receive Date: 20230317
  Receipt Date: 20230317
  Transmission Date: 20230417
  Serious: Yes (Hospitalization, Other)
  Sender: FDA-Public Use
  Company Number: DE-NOVOPROD-1036016

PATIENT
  Age: 25 Year
  Sex: Male
  Weight: 54 kg

DRUGS (9)
  1. LEVEMIR [Suspect]
     Active Substance: INSULIN DETEMIR
     Dosage: 2-0-0-4 IU
     Dates: start: 201402
  2. LEVEMIR [Suspect]
     Active Substance: INSULIN DETEMIR
     Indication: Product used for unknown indication
     Dosage: 7-0-0-10 IU
     Dates: end: 201312
  3. LEVEMIR [Suspect]
     Active Substance: INSULIN DETEMIR
     Dosage: 6-0-0-8 (UNIT IS NOT REPORTED)
     Dates: start: 201411
  4. LEVEMIR [Suspect]
     Active Substance: INSULIN DETEMIR
     Dosage: 2-0-0-2 (UNIT IS NOT REPORTED)
     Dates: start: 201410
  5. INSULIN LISPRO [Concomitant]
     Active Substance: INSULIN LISPRO
     Dosage: BU FACTOR: 0.5-0.5-0.5
     Dates: start: 201402
  6. INSULIN LISPRO [Concomitant]
     Active Substance: INSULIN LISPRO
     Indication: Product used for unknown indication
     Dosage: PRANDIAL: BU FACTOR:1.75-1.75-1.75
     Dates: end: 201412
  7. INSULIN LISPRO [Concomitant]
     Active Substance: INSULIN LISPRO
     Dosage: BREAD UNIT FACTOR 1.2-0.5-0.5, CORRECTION WITH 1 IU/50 MG/DL } BLOOD GLUCOSE 200 MG/DL
     Dates: start: 201410
  8. INSULIN LISPRO [Concomitant]
     Active Substance: INSULIN LISPRO
     Dosage: PRANDIAL: BREAD UNIT FACTOR 1.0-1.0-0.5, CORRECTION WITH 1 IU/50 MG/DL } BLOOD GLUCOSE 200 MG/DL
     Dates: start: 201411
  9. LEVOTHYROXINE SODIUM [Concomitant]
     Active Substance: LEVOTHYROXINE SODIUM
     Indication: Autoimmune thyroiditis
     Dosage: UNK
     Dates: start: 201312

REACTIONS (3)
  - Gastroenteritis [Unknown]
  - Circulatory collapse [Unknown]
  - Hypoglycaemia [Not Recovered/Not Resolved]

NARRATIVE: CASE EVENT DATE: 20140101
